FAERS Safety Report 7247779-1 (Version None)
Quarter: 2011Q1

REPORT INFORMATION
  Report Type: 
  Country: None (occurrence: None)
  Receive Date: 20110127
  Receipt Date: 20110114
  Transmission Date: 20110831
  Serious: Yes (Death)
  Sender: FDA-Public Use
  Company Number: FR-ELI_LILLY_AND_COMPANY-FR201011007252

PATIENT
  Age: 44 Year
  Sex: Male
  Weight: 92.2 kg

DRUGS (3)
  1. LYSANXIA [Concomitant]
     Indication: ANXIETY
     Dosage: UNK, UNKNOWN
     Route: 048
  2. ZYPADHERA [Suspect]
     Indication: SCHIZOPHRENIA
     Dosage: 300 MG, EVERY 2WEEKS
     Route: 030
     Dates: start: 20100520, end: 20100909
  3. ZYPADHERA [Suspect]
     Dosage: 405 MG, MONTHLY (1/M)
     Dates: start: 20100909

REACTIONS (3)
  - DRY MOUTH [None]
  - COMPLETED SUICIDE [None]
  - FATIGUE [None]
